FAERS Safety Report 10276406 (Version 1)
Quarter: 2014Q3

REPORT INFORMATION
  Report Type: Spontaneous
  Country: US (occurrence: None)
  Receive Date: 20140701
  Receipt Date: 20140701
  Transmission Date: 20150326
  Serious: Yes (Other)
  Sender: FDA-Public Use
  Company Number: None

PATIENT
  Age: 63 Year
  Sex: Female

DRUGS (1)
  1. GLIPIZIDE ER [Suspect]
     Active Substance: GLIPIZIDE
     Route: 048
     Dates: start: 20120219

REACTIONS (3)
  - Peripheral swelling [None]
  - Hypoaesthesia [None]
  - Reaction to drug excipients [None]

NARRATIVE: CASE EVENT DATE: 201312
